FAERS Safety Report 9339975 (Version 1)
Quarter: 2013Q2

REPORT INFORMATION
  Report Type: Spontaneous
  Country: DK (occurrence: None)
  Receive Date: 20130605
  Receipt Date: 20130605
  Transmission Date: 20140414
  Serious: Yes (Other)
  Sender: FDA-Public Use
  Company Number: 1730538

PATIENT
  Age: 69 Year
  Sex: Female

DRUGS (10)
  1. EPIRUBICIN HYDROCHLORIDE [Suspect]
     Indication: BREAST CANCER
  2. (OXALIPLATIN) [Suspect]
     Indication: BREAST CANCER
  3. VINORELBINE TARTRATE [Suspect]
     Indication: BREAST CANCER
  4. TRASTUZUMAB [Suspect]
     Indication: BREAST CANCER
  5. CAPECITABINE [Suspect]
     Indication: BREAST CANCER
  6. DOCETAXEL [Suspect]
     Indication: BREAST CANCER
  7. LAPATINIB [Suspect]
     Indication: BREAST CANCER
  8. PACLITAXEL [Suspect]
     Indication: BREAST CANCER
  9. LETROZOLE [Suspect]
     Indication: BREAST CANCER
  10. TAMOXIFEN [Suspect]
     Indication: BREAST CANCER

REACTIONS (3)
  - Disease progression [None]
  - Breast cancer [None]
  - Metastases to liver [None]
